FAERS Safety Report 12601469 (Version 1)
Quarter: 2016Q3

REPORT INFORMATION
  Report Type: Spontaneous
  Country: US (occurrence: US)
  Receive Date: 20160728
  Receipt Date: 20160728
  Transmission Date: 20161109
  Serious: No
  Sender: FDA-Public Use
  Company Number: US-LUPIN PHARMACEUTICALS INC.-E2B_00005513

PATIENT
  Age: 77 Year
  Sex: Male
  Weight: 90.8 kg

DRUGS (4)
  1. LEVETIRACETAM TABLETS USP 500MG [Suspect]
     Active Substance: LEVETIRACETAM
     Route: 048
     Dates: start: 20160518, end: 20160518
  2. SYNTHROID [Concomitant]
     Active Substance: LEVOTHYROXINE SODIUM
     Indication: PRODUCT USED FOR UNKNOWN INDICATION
     Route: 065
  3. LEVETIRACETAM TABLETS USP 500MG [Suspect]
     Active Substance: LEVETIRACETAM
     Indication: SEIZURE
     Route: 048
     Dates: start: 201510
  4. LEVETIRACETAM TABLETS USP 500MG [Suspect]
     Active Substance: LEVETIRACETAM
     Route: 048
     Dates: start: 20160519

REACTIONS (2)
  - Joint stiffness [Recovered/Resolved]
  - Muscle twitching [Recovered/Resolved]

NARRATIVE: CASE EVENT DATE: 20160519
